FAERS Safety Report 7643062-0 (Version None)
Quarter: 2011Q3

REPORT INFORMATION
  Report Type: 
  Country: None (occurrence: None)
  Receive Date: 20110728
  Receipt Date: 20110727
  Transmission Date: 20111222
  Serious: Yes (Other)
  Sender: FDA-Public Use
  Company Number: US-PFIZER INC-2011171560

PATIENT
  Sex: Female
  Weight: 43.537 kg

DRUGS (5)
  1. LEXAPRO [Concomitant]
     Dosage: UNK
  2. ALBUTEROL SULFATE AUTOHALER [Concomitant]
     Dosage: 20 MG, UNK
  3. SYMBICORT [Concomitant]
     Dosage: UNK
  4. CHANTIX [Suspect]
     Indication: SMOKING CESSATION THERAPY
     Dosage: 0.5 MG, 1X/DAY
     Route: 048
     Dates: start: 20110724
  5. CHANTIX [Suspect]
     Dosage: 0.5 MG, 2X/DAY
     Route: 048
     Dates: start: 20110701

REACTIONS (1)
  - CORNEAL LESION [None]
